FAERS Safety Report 5810667-9 (Version None)
Quarter: 2008Q3

REPORT INFORMATION
  Report Type: 
  Country: None (occurrence: None)
  Receive Date: 20080715
  Receipt Date: 20070416
  Transmission Date: 20090109
  Serious: Yes (Hospitalization)
  Sender: FDA-Public Use
  Company Number: TW-BOEHRINGER INGELHEIM GMBH, GERMANY-2008-DE-04068GL

PATIENT
  Sex: Male

DRUGS (3)
  1. TELMISARTAN [Suspect]
     Indication: HYPERTENSION
     Route: 048
     Dates: start: 20060412, end: 20060601
  2. CARVEDILOL [Suspect]
     Indication: HYPERTENSION
     Route: 048
     Dates: start: 20051216, end: 20060601
  3. METOLAZONE [Suspect]
     Indication: HYPERTENSION
     Route: 048
     Dates: start: 20051216, end: 20060601

REACTIONS (3)
  - BLOOD GLUCOSE INCREASED [None]
  - FAECAL INCONTINENCE [None]
  - VERTIGO POSITIONAL [None]
